FAERS Safety Report 8487019-9 (Version None)
Quarter: 2012Q3

REPORT INFORMATION
  Report Type: 
  Country: None (occurrence: None)
  Receive Date: 20120704
  Receipt Date: 20120629
  Transmission Date: 20120928
  Serious: Yes (Other)
  Sender: FDA-Public Use
  Company Number: PHHY2012AR056342

PATIENT
  Sex: Male

DRUGS (5)
  1. SINTROM [Suspect]
     Indication: HYPERTENSION
     Dates: start: 20100101
  2. ACETAMINOPHEN [Concomitant]
  3. DORIXINA                           /00729302/ [Concomitant]
  4. DIOVAN [Suspect]
     Indication: HYPERTENSION
     Dosage: 80 MG, DAILY
     Dates: start: 20100101
  5. IBUPROFEN [Concomitant]

REACTIONS (5)
  - THROMBOSIS [None]
  - ULCER [None]
  - BACK PAIN [None]
  - ASTHENIA [None]
  - BLOOD PRESSURE DECREASED [None]
